FAERS Safety Report 17109172 (Version 2)
Quarter: 2025Q3

REPORT INFORMATION
  Report Type: Spontaneous
  Country: EU (occurrence: EU)
  Receive Date: 20191204
  Receipt Date: 20250811
  Transmission Date: 20251020
  Serious: Yes (Hospitalization)
  Sender: TEVA
  Company Number: None

PATIENT
  Age: 41 Year
  Sex: Male

DRUGS (7)
  1. DIAZEPAM [Suspect]
     Active Substance: DIAZEPAM
     Indication: Product used for unknown indication
     Route: 048
  2. OXAZEPAM [Suspect]
     Active Substance: OXAZEPAM
     Indication: Product used for unknown indication
     Route: 048
  3. ALCOHOL [Suspect]
     Active Substance: ALCOHOL
     Indication: Alcohol use
     Route: 048
     Dates: start: 1987
  4. HEROIN [Suspect]
     Active Substance: DIAMORPHINE
     Indication: Drug dependence
     Route: 045
     Dates: start: 1997, end: 2007
  5. COCAINE [Suspect]
     Active Substance: COCAINE
     Indication: Drug abuse
     Route: 045
     Dates: start: 2007
  6. SUBUTEX [Suspect]
     Active Substance: BUPRENORPHINE HYDROCHLORIDE
     Indication: Product used for unknown indication
     Route: 065
     Dates: start: 2007, end: 2014
  7. CANNABIS SATIVA SUBSP. INDICA TOP [Suspect]
     Active Substance: CANNABIS SATIVA SUBSP. INDICA TOP
     Indication: Drug abuse
     Route: 065
     Dates: start: 1992

REACTIONS (7)
  - Drug dependence [Recovering/Resolving]
  - Drug dependence [Recovering/Resolving]
  - Drug dependence [Recovering/Resolving]
  - Alcohol abuse [Recovering/Resolving]
  - Intentional product misuse [Recovering/Resolving]
  - Toxicity to various agents [Recovered/Resolved]
  - Drug dependence [Recovered/Resolved]

NARRATIVE: CASE EVENT DATE: 19870101
